FAERS Safety Report 18360435 (Version 1)
Quarter: 2020Q4

REPORT INFORMATION
  Report Type: Spontaneous
  Country: US (occurrence: US)
  Receive Date: 20201008
  Receipt Date: 20201008
  Transmission Date: 20210114
  Serious: No
  Sender: FDA-Public Use
  Company Number: US-INDIVIOR US-INDV-123811-2020

PATIENT
  Sex: Female

DRUGS (2)
  1. BUPRENORPHINE AND NALOXONE [Suspect]
     Active Substance: BUPRENORPHINE HYDROCHLORIDE\NALOXONE HYDROCHLORIDE
     Indication: ANXIETY
     Dosage: 8 MILLIGRAM, TID (THREE TIMES DAILY)
     Route: 060
  2. UNSPECIFIED GENERIC BUPRENORPHINE/NALOXONE  FILM [Suspect]
     Active Substance: BUPRENORPHINE HYDROCHLORIDE\NALOXONE HYDROCHLORIDE
     Indication: ANXIETY
     Dosage: DOSE TO GET 14 MG PER DAY INSTEAD OF PRESCRIBED 12 MG
     Route: 060

REACTIONS (11)
  - Intentional product use issue [Unknown]
  - Pain in extremity [Recovering/Resolving]
  - Cold sweat [Recovering/Resolving]
  - Fatigue [Not Recovered/Not Resolved]
  - Drug withdrawal syndrome [Recovering/Resolving]
  - Off label use [Unknown]
  - Anxiety [Unknown]
  - Insomnia [Recovering/Resolving]
  - Inappropriate schedule of product administration [Unknown]
  - Therapeutic response decreased [Unknown]
  - Wrong technique in product usage process [Unknown]
